FAERS Safety Report 9104665 (Version 2)
Quarter: 2013Q2

REPORT INFORMATION
  Report Type: Spontaneous
  Country: US (occurrence: US)
  Receive Date: 20130219
  Receipt Date: 20130405
  Transmission Date: 20140414
  Serious: No
  Sender: FDA-Public Use
  Company Number: US-BIOGENIDEC-2013BI013840

PATIENT
  Age: 57 Year
  Sex: Female

DRUGS (1)
  1. TYSABRI [Suspect]
     Indication: MULTIPLE SCLEROSIS
     Route: 042
     Dates: start: 20120926

REACTIONS (4)
  - Fall [Recovered/Resolved]
  - Periorbital contusion [Not Recovered/Not Resolved]
  - Neck pain [Not Recovered/Not Resolved]
  - Joint swelling [Not Recovered/Not Resolved]
